FAERS Safety Report 26101244 (Version 1)
Quarter: 2025Q4

REPORT INFORMATION
  Report Type: Spontaneous
  Country: US (occurrence: US)
  Receive Date: 20251128
  Receipt Date: 20251128
  Transmission Date: 20260117
  Serious: Yes (Death, Hospitalization, Other)
  Sender: CONCORD BIOTECH LTD
  Company Number: US-CBL-003551

PATIENT
  Sex: Male

DRUGS (3)
  1. TACROLIMUS [Suspect]
     Active Substance: TACROLIMUS
     Indication: Prophylaxis against transplant rejection
     Route: 065
  2. MYCOPHENOLATE MOFETIL [Suspect]
     Active Substance: MYCOPHENOLATE MOFETIL
     Indication: Prophylaxis against transplant rejection
     Route: 065
  3. UNSPECIFIED INGREDIENT [Suspect]
     Active Substance: UNSPECIFIED INGREDIENT
     Indication: Prophylaxis against transplant rejection
     Route: 065

REACTIONS (7)
  - Complications of transplanted heart [Recovered/Resolved]
  - Transplant rejection [Fatal]
  - Renal failure [Fatal]
  - Cardiogenic shock [Fatal]
  - Influenza [Unknown]
  - Cytomegalovirus viraemia [Unknown]
  - Influenza like illness [Unknown]
